FAERS Safety Report 12539819 (Version 1)
Quarter: 2016Q3

REPORT INFORMATION
  Report Type: Spontaneous
  Country: UA (occurrence: UA)
  Receive Date: 20160708
  Receipt Date: 20160708
  Transmission Date: 20161109
  Serious: Yes (Hospitalization, Other)
  Sender: FDA-Public Use
  Company Number: UA-SUN PHARMACEUTICAL INDUSTRIES LTD-2016R1-119673

PATIENT
  Age: 52 Year
  Sex: Female

DRUGS (5)
  1. B-VITAMINS [Concomitant]
     Indication: PRODUCT USED FOR UNKNOWN INDICATION
     Dosage: UNK
     Route: 065
  2. METFORMIN HYDROCHLORIDE. [Suspect]
     Active Substance: METFORMIN HYDROCHLORIDE
     Indication: DIABETES MELLITUS
     Dosage: 100 MG, BID
     Route: 065
  3. PREGABALIN. [Concomitant]
     Active Substance: PREGABALIN
     Indication: PRODUCT USED FOR UNKNOWN INDICATION
     Dosage: 150 MG, BID
     Route: 065
  4. GLIMEPIRIDE. [Concomitant]
     Active Substance: GLIMEPIRIDE
     Indication: PRODUCT USED FOR UNKNOWN INDICATION
     Dosage: 2 MG, BID
     Route: 065
  5. PENTOXYPHILLINI + NACL + THIOCTIC ACID [Concomitant]
     Indication: PRODUCT USED FOR UNKNOWN INDICATION
     Dosage: PENTOXYPHILLINI 2% 5 ML+ NACL 0.9% 200 ML/IV BOLUS ALTERNATE DAY + THIOCTIC ACID
     Route: 065

REACTIONS (1)
  - Condition aggravated [Recovering/Resolving]
